FAERS Safety Report 16010896 (Version 1)
Quarter: 2019Q1

REPORT INFORMATION
  Report Type: Spontaneous
  Country: US (occurrence: US)
  Receive Date: 20190227
  Receipt Date: 20190227
  Transmission Date: 20190418
  Serious: Yes (Other)
  Sender: FDA-Public Use
  Company Number: US-GW PHARMA-201902USGW0370

PATIENT

DRUGS (4)
  1. EPIDIOLEX [Suspect]
     Active Substance: CANNABIDIOL
     Indication: EPILEPSY
  2. EPIDIOLEX [Suspect]
     Active Substance: CANNABIDIOL
     Indication: QUADRIPLEGIA
     Dosage: 5 MG/KG 90 MILLIGRAM, BID
     Route: 048
     Dates: start: 20190124, end: 20190131
  3. EPIDIOLEX [Suspect]
     Active Substance: CANNABIDIOL
     Indication: IDIOPATHIC GENERALISED EPILEPSY
  4. EPIDIOLEX [Suspect]
     Active Substance: CANNABIDIOL
     Indication: CEREBRAL PALSY
     Dosage: 10 MG/KG 180 MILLIGRAM, BID
     Route: 048
     Dates: start: 20190201

REACTIONS (4)
  - Somnolence [Unknown]
  - Off label use [Unknown]
  - Seizure [Unknown]
  - Weight decreased [Unknown]
